FAERS Safety Report 9186793 (Version 1)
Quarter: 2012Q4

REPORT INFORMATION
  Report Type: 
  Country: GB (occurrence: GB)
  Receive Date: 20121102
  Receipt Date: 20121102
  Transmission Date: 20130627
  Serious: Yes (Hospitalization, Other)
  Sender: FDA-Public Use
  Company Number: GB-ELI_LILLY_AND_COMPANY-GB201210006860

PATIENT
  Age: 42 Year
  Sex: Female
  Weight: 89 kg

DRUGS (15)
  1. BYDUREON [Suspect]
     Indication: DIABETES MELLITUS
     Dosage: 2 mg, weekly (1/W)
     Route: 042
     Dates: start: 20120816
  2. CITALOPRAM [Concomitant]
     Dosage: UNK, unknown
  3. CO-CODAMOL [Concomitant]
     Dosage: UNK, unknown
  4. COLECALCIFEROL [Concomitant]
     Dosage: UNK, unknown
  5. FERROUS FUMARATE [Concomitant]
     Dosage: UNK, unknown
  6. GLICLAZIDE [Concomitant]
     Dosage: UNK, unknown
  7. GTN [Concomitant]
     Dosage: UNK, unknown
  8. LEVEMIR [Concomitant]
     Dosage: UNK, unknown
  9. METFORMIN [Concomitant]
     Dosage: UNK, unknown
  10. OXYBUTYNIN [Concomitant]
     Dosage: UNK, unknown
  11. PIROXICAM [Concomitant]
     Dosage: UNK, unknown
  12. ROSUVASTATIN [Concomitant]
     Dosage: UNK, unknown
  13. SITAGLIPTIN [Concomitant]
     Dosage: UNK, unknown
  14. SYMBICORT [Concomitant]
     Dosage: UNK, unknown
  15. ZOPICLONE [Concomitant]
     Dosage: UNK, unknown

REACTIONS (1)
  - Syncope [Unknown]
